FAERS Safety Report 8552381-5 (Version None)
Quarter: 2012Q3

REPORT INFORMATION
  Report Type: 
  Country: None (occurrence: None)
  Receive Date: 20120731
  Receipt Date: 20120725
  Transmission Date: 20120928
  Serious: Yes (Hospitalization)
  Sender: FDA-Public Use
  Company Number: KR-SANOFI-AVENTIS-2012SA007484

PATIENT
  Age: 59 Year
  Sex: Male
  Weight: 48 kg

DRUGS (3)
  1. ORAL ANTIDIABETICS [Concomitant]
     Indication: DIABETES MELLITUS
     Route: 048
  2. LANTUS [Suspect]
     Indication: DIABETES MELLITUS
     Dosage: DOSE:20 UNIT(S)
     Route: 058
  3. LANTUS [Suspect]
     Dosage: DOSE:24 UNIT(S)
     Route: 058
     Dates: start: 20120510

REACTIONS (1)
  - LUNG NEOPLASM MALIGNANT [None]
